FAERS Safety Report 8509574-2 (Version None)
Quarter: 2012Q3

REPORT INFORMATION
  Report Type: 
  Country: None (occurrence: None)
  Receive Date: 20120703
  Receipt Date: 20120620
  Transmission Date: 20120928
  Serious: Yes (Other)
  Sender: FDA-Public Use
  Company Number: ADR-2012-01120

PATIENT
  Sex: Female

DRUGS (2)
  1. LIORESAL [Suspect]
     Indication: CEREBRAL PALSY
  2. LIORESAL [Suspect]
     Indication: MUSCLE SPASTICITY

REACTIONS (17)
  - THERAPEUTIC RESPONSE DECREASED [None]
  - BRADYPHRENIA [None]
  - FEELING ABNORMAL [None]
  - DEVICE BREAKAGE [None]
  - POSTURE ABNORMAL [None]
  - ABNORMAL BEHAVIOUR [None]
  - PERITONITIS [None]
  - WITHDRAWAL SYNDROME [None]
  - DRUG TOLERANCE [None]
  - PARAESTHESIA [None]
  - HEADACHE [None]
  - GASTRIC VOLVULUS [None]
  - INFUSION SITE MASS [None]
  - CONVULSION [None]
  - MUSCLE TIGHTNESS [None]
  - NECK INJURY [None]
  - INFECTION [None]
